FAERS Safety Report 23948015 (Version 1)
Quarter: 2024Q2

REPORT INFORMATION
  Report Type: Report from Study
  Country: US (occurrence: US)
  Receive Date: 20240607
  Receipt Date: 20240607
  Transmission Date: 20240716
  Serious: Yes (Hospitalization, Other)
  Sender: FDA-Public Use
  Company Number: US-ABBVIE-5724530

PATIENT
  Sex: Female

DRUGS (5)
  1. VENCLEXTA [Suspect]
     Active Substance: VENETOCLAX
     Indication: Acute myeloid leukaemia
     Dosage: 400MG DAILY X7 DAYS, 21 DAYS OFF EACH 28 DAY CYCLE   100 MG STRENGTH  ?DISCONTINUED IN APR 2024
     Route: 048
     Dates: start: 20240413
  2. VENCLEXTA [Suspect]
     Active Substance: VENETOCLAX
     Indication: Acute myeloid leukaemia
     Dosage: 400MG DAILY X7 DAYS, 21 DAYS OFF EACH 28 DAY CYCLE?100 MG STRENGTH  DISCONTINUED IN APR 2024
     Route: 048
     Dates: start: 20240404
  3. VENCLEXTA [Suspect]
     Active Substance: VENETOCLAX
     Indication: Acute myeloid leukaemia
     Dosage: 100 MG, 400MG DAILY X7 DAYS, 21 DAYS OFF EACH 28 DAY CYCLE?FIRST AND LAST ADMIN DATE 2024
     Route: 048
  4. VIDAZA [Concomitant]
     Active Substance: AZACITIDINE
     Indication: Product used for unknown indication
     Dosage: D 1-7 OF 28 DAYS CYCLE
  5. NOXAFIL [Concomitant]
     Active Substance: POSACONAZOLE
     Indication: Product used for unknown indication

REACTIONS (3)
  - Hospitalisation [Unknown]
  - Myelosuppression [Unknown]
  - Off label use [Unknown]

NARRATIVE: CASE EVENT DATE: 20240101
